FAERS Safety Report 9295261 (Version 1)
Quarter: 2013Q1

REPORT INFORMATION
  Report Type: Spontaneous
  Country: US (occurrence: None)
  Receive Date: 20121227
  Receipt Date: 20121227
  Transmission Date: 20140127
  Serious: No
  Sender: FDA-Public Use
  Company Number: PHEH2012US021658

PATIENT
  Sex: Female

DRUGS (10)
  1. AFINITOR [Suspect]
     Indication: BREAST CANCER
     Route: 048
  2. KYTRIL (GRANISETRON HYDROCHLORIDE) [Concomitant]
  3. TRIAM (HYDROCHLOROTHIAZIDE, TRIAMTERENE) [Concomitant]
  4. HYDROMORPHONE (HYDROMORPHONE HYDROCHLORIDE) [Concomitant]
  5. LISINOPRIL [Concomitant]
  6. COUMADIN (WARFARIN SODIUM) [Concomitant]
  7. SOMA (CARISOPRODOL) [Concomitant]
  8. EXEMESTANE (EXEMESTANE) [Concomitant]
  9. SENNA (SENNA ALEXANDRINA) [Concomitant]
  10. DOCUSATE (DOCUSATE) [Concomitant]

REACTIONS (1)
  - Nausea [None]
